FAERS Safety Report 16806557 (Version 1)
Quarter: 2019Q3

REPORT INFORMATION
  Report Type: Spontaneous
  Country: US (occurrence: US)
  Receive Date: 20190913
  Receipt Date: 20190913
  Transmission Date: 20191005
  Serious: No
  Sender: FDA-Public Use
  Company Number: US-SA-2019SA251717

PATIENT
  Sex: Female

DRUGS (1)
  1. TUBERSOL [Suspect]
     Active Substance: TUBERCULIN PURIFIED PROTEIN DERIVATIVE
     Indication: TUBERCULIN TEST
     Dosage: UNK
     Route: 065
     Dates: start: 20190719, end: 20190719

REACTIONS (3)
  - Vaccination site pruritus [Unknown]
  - Pruritus generalised [Unknown]
  - Vaccination site rash [Unknown]

NARRATIVE: CASE EVENT DATE: 20190719
